FAERS Safety Report 15858933 (Version 2)
Quarter: 2019Q1

REPORT INFORMATION
  Report Type: Spontaneous
  Country: US (occurrence: US)
  Receive Date: 20190123
  Receipt Date: 20190213
  Transmission Date: 20190417
  Serious: No
  Sender: FDA-Public Use
  Company Number: US-GLAXOSMITHKLINE-US2019004815

PATIENT
  Sex: Female

DRUGS (2)
  1. OPTICHAMBER (DEVICE) [Suspect]
     Active Substance: DEVICE
     Indication: PRODUCT USED FOR UNKNOWN INDICATION
     Dosage: UNK UNK, U
  2. ADVAIR HFA [Suspect]
     Active Substance: FLUTICASONE PROPIONATE\SALMETEROL XINAFOATE
     Indication: PRODUCT USED FOR UNKNOWN INDICATION
     Dosage: UNK UNK, U
     Route: 055

REACTIONS (7)
  - Influenza [Unknown]
  - Malaise [Not Recovered/Not Resolved]
  - Device leakage [None]
  - Drug effect incomplete [Unknown]
  - Underdose [Unknown]
  - Off label use [Unknown]
  - Prescribed underdose [Unknown]
